FAERS Safety Report 23185022 (Version 1)
Quarter: 2023Q4

REPORT INFORMATION
  Report Type: Other
  Country: PL (occurrence: PL)
  Receive Date: 20231115
  Receipt Date: 20231115
  Transmission Date: 20240110
  Serious: Yes (Hospitalization, Other)
  Sender: FDA-Public Use
  Company Number: None

PATIENT
  Age: 21 Year
  Sex: Male

DRUGS (2)
  1. IBUPROFEN [Suspect]
     Active Substance: IBUPROFEN
     Indication: Spinal pain
     Dosage: UNK, TREATED WITH DRUG AD HOC
     Route: 065
  2. KETOPROFEN [Suspect]
     Active Substance: KETOPROFEN
     Indication: Spinal pain
     Dosage: UNK,TREATED WITH DRUG AD HOC
     Route: 065

REACTIONS (6)
  - Urine abnormality [None]
  - Proteinuria [None]
  - Pain [None]
  - Oliguria [None]
  - Tubulointerstitial nephritis [None]
  - Acute kidney injury [Unknown]
